FAERS Safety Report 6472567-3 (Version None)
Quarter: 2009Q4

REPORT INFORMATION
  Report Type: 
  Country: None (occurrence: None)
  Receive Date: 20091130
  Receipt Date: 20091116
  Transmission Date: 20100525
  Serious: Yes (Hospitalization, Other)
  Sender: FDA-Public Use
  Company Number: 2009-04566

PATIENT
  Age: 66 Year
  Sex: Male

DRUGS (5)
  1. VELCADE [Suspect]
     Indication: MULTIPLE MYELOMA
     Dosage: 1.3 MG/M2,
  2. FAMCICLOVIR (FAMCICLOVIR) [Concomitant]
  3. ALLOPURINOL [Concomitant]
  4. OMEPRAZOLE [Concomitant]
  5. DOMPERIDONE (DOMPERIDONE) [Concomitant]

REACTIONS (17)
  - CONFUSIONAL STATE [None]
  - CONSTIPATION [None]
  - DEHYDRATION [None]
  - DYSURIA [None]
  - HAEMOGLOBIN DECREASED [None]
  - HERPES ZOSTER [None]
  - HYPOKALAEMIA [None]
  - IMMUNOSUPPRESSION [None]
  - INAPPROPRIATE ANTIDIURETIC HORMONE SECRETION [None]
  - LARGE INTESTINAL OBSTRUCTION [None]
  - LETHARGY [None]
  - NEUTROPHIL COUNT DECREASED [None]
  - PERIPHERAL COLDNESS [None]
  - SEPSIS [None]
  - THROMBOCYTOPENIA [None]
  - URINARY RETENTION [None]
  - WHITE BLOOD CELL COUNT DECREASED [None]
